FAERS Safety Report 17051946 (Version 1)
Quarter: 2019Q4

REPORT INFORMATION
  Report Type: Spontaneous
  Country: JP (occurrence: JP)
  Receive Date: 20191120
  Receipt Date: 20191120
  Transmission Date: 20200122
  Serious: Yes (Death, Hospitalization)
  Sender: FDA-Public Use
  Company Number: NVSC2019JP039638

PATIENT
  Age: 67 Year
  Sex: Female

DRUGS (2)
  1. PREDNISOLONE. [Suspect]
     Active Substance: PREDNISOLONE
     Indication: CELLULITIS
     Dosage: 55 MG, QD
     Route: 048
  2. PREDNISOLONE. [Suspect]
     Active Substance: PREDNISOLONE
     Dosage: 15 MG, QD
     Route: 048

REACTIONS (5)
  - Interstitial lung disease [Fatal]
  - Osteomyelitis [Unknown]
  - Disseminated cryptococcosis [Recovered/Resolved]
  - Product use in unapproved indication [Unknown]
  - Cryptococcosis [Recovered/Resolved]
